FAERS Safety Report 8809189 (Version 1)
Quarter: 2012Q4

REPORT INFORMATION
  Report Type: 
  Country: NO (occurrence: NO)
  Receive Date: 20120926
  Receipt Date: 20120926
  Transmission Date: 20130627
  Serious: Yes (Other)
  Sender: FDA-Public Use
  Company Number: PHHY2012NO081509

PATIENT
  Age: 62 Year
  Sex: Male

DRUGS (9)
  1. SIMVASTATIN [Suspect]
     Indication: CEREBROVASCULAR ACCIDENT
     Dosage: 40 mg, UNK
     Dates: start: 20080821, end: 201205
  2. SIMVASTATIN [Suspect]
     Indication: HYPERTENSION
  3. SIMVASTATIN [Suspect]
     Indication: TYPE 2 DIABETES MELLITUS
  4. FELODIPINE [Concomitant]
     Dosage: 5 mg, UNK
     Dates: start: 20010215
  5. ALBYL-E [Concomitant]
     Dates: start: 20031204
  6. FAMOTIDINE [Concomitant]
     Dates: start: 20081016
  7. METFORMIN HYDROCHLORIDE [Concomitant]
  8. CARVEDILOL [Concomitant]
     Dosage: 50 mg, BID (25 mg, 2 DF in the morning and 2 DF in the evening)
     Dates: start: 20081002
  9. AERIUS [Concomitant]
     Indication: HYPERSENSITIVITY

REACTIONS (4)
  - Urinary bladder haemorrhage [Unknown]
  - Chromaturia [Unknown]
  - Myositis [Unknown]
  - Blood urine present [Unknown]
